FAERS Safety Report 4905376-4 (Version None)
Quarter: 2006Q1

REPORT INFORMATION
  Report Type: 
  Country: None (occurrence: None)
  Receive Date: 20060207
  Receipt Date: 20060207
  Transmission Date: 20060701
  Serious: Yes (Hospitalization)
  Sender: FDA-Public Use
  Company Number: None

PATIENT
  Age: 71 Year
  Sex: Male

DRUGS (7)
  1. WARFARIN [Suspect]
     Indication: PERIPHERAL VASCULAR DISORDER
     Dosage: 5MG  PO  QD
     Route: 048
     Dates: start: 20050621, end: 20051202
  2. ISOSORBIDE DINITRATE [Concomitant]
  3. NICOTINIC ACID [Concomitant]
  4. GLYBURIDE [Concomitant]
  5. PRECISION GLUCOSE TEST STRIP [Concomitant]
  6. SIMVASTATIN [Concomitant]
  7. CAPSAICIN [Concomitant]

REACTIONS (3)
  - ACUTE MYOCARDIAL INFARCTION [None]
  - FAECES DISCOLOURED [None]
  - GASTROINTESTINAL HAEMORRHAGE [None]
